FAERS Safety Report 12787902 (Version 2)
Quarter: 2016Q4

REPORT INFORMATION
  Report Type: Report from Study
  Country: None (occurrence: NL)
  Receive Date: 20160928
  Receipt Date: 20161006
  Transmission Date: 20170207
  Serious: Yes (Hospitalization)
  Sender: FDA-Public Use
  Company Number: NL-ABBVIE-16K-114-1737836-00

PATIENT
  Age: 72 Year
  Sex: Male

DRUGS (1)
  1. DUODOPA [Suspect]
     Active Substance: CARBIDOPA\LEVODOPA
     Indication: PARKINSON^S DISEASE
     Dosage: MORNING DOSE: 8 CONTINUOUS DOSE: 2.7 EXTRA DOSE: 1
     Route: 050
     Dates: start: 20150917

REACTIONS (5)
  - Unintentional medical device removal [Unknown]
  - Confusional state [Not Recovered/Not Resolved]
  - Cognitive disorder [Not Recovered/Not Resolved]
  - Device breakage [Unknown]
  - Freezing phenomenon [Not Recovered/Not Resolved]

NARRATIVE: CASE EVENT DATE: 201609
